FAERS Safety Report 8493134-6 (Version None)
Quarter: 2012Q3

REPORT INFORMATION
  Report Type: 
  Country: None (occurrence: None)
  Receive Date: 20120706
  Receipt Date: 20120621
  Transmission Date: 20120928
  Serious: Yes (Other)
  Sender: FDA-Public Use
  Company Number: GB-WATSON-2012-11175

PATIENT
  Age: 63 Year
  Sex: Male
  Weight: 100 kg

DRUGS (20)
  1. OMEPRAZOLE [Suspect]
     Indication: PRODUCT USED FOR UNKNOWN INDICATION
     Dosage: UNK
     Route: 065
     Dates: start: 20120522
  2. BUDESONIDE [Concomitant]
     Indication: PRODUCT USED FOR UNKNOWN INDICATION
     Dosage: UNK
     Dates: start: 20120321, end: 20120418
  3. SIMVASTATIN [Concomitant]
     Indication: PRODUCT USED FOR UNKNOWN INDICATION
     Dosage: UNK
     Dates: start: 20120321, end: 20120418
  4. BUDESONIDE [Concomitant]
     Dosage: UNK
     Dates: start: 20120514, end: 20120611
  5. SYMBICORT [Concomitant]
     Indication: PRODUCT USED FOR UNKNOWN INDICATION
     Dosage: UNK
     Dates: start: 20120321, end: 20120322
  6. NICOTINE [Concomitant]
     Indication: PRODUCT USED FOR UNKNOWN INDICATION
     Dosage: UNK
     Dates: start: 20120514, end: 20120515
  7. RANITIDINE [Concomitant]
     Indication: PRODUCT USED FOR UNKNOWN INDICATION
     Dosage: UNK
     Dates: start: 20120612
  8. FUROSEMIDE [Concomitant]
     Indication: PRODUCT USED FOR UNKNOWN INDICATION
     Dosage: UNK
     Dates: start: 20120321, end: 20120418
  9. SILDENAFIL [Concomitant]
     Indication: PRODUCT USED FOR UNKNOWN INDICATION
     Dosage: UNK
     Dates: start: 20120321, end: 20120418
  10. PHENYTOIN SODIUM [Concomitant]
     Indication: PRODUCT USED FOR UNKNOWN INDICATION
     Dosage: UNK
     Dates: start: 20120321
  11. LISINOPRIL [Concomitant]
     Dosage: UNK
     Dates: start: 20120326, end: 20120423
  12. LISINOPRIL [Concomitant]
     Dosage: UNK
     Dates: start: 20120514, end: 20120611
  13. SILDENAFIL [Concomitant]
     Dosage: UNK
     Dates: start: 20120514, end: 20120611
  14. NICOTINE [Concomitant]
     Dosage: UNK
     Dates: start: 20120514, end: 20120521
  15. VARENICLINE [Concomitant]
     Indication: PRODUCT USED FOR UNKNOWN INDICATION
     Dosage: UNK
     Dates: start: 20120522, end: 20120523
  16. LISINOPRIL [Concomitant]
     Indication: PRODUCT USED FOR UNKNOWN INDICATION
     Dosage: UNK
     Dates: start: 20120215, end: 20120314
  17. SIMVASTATIN [Concomitant]
     Dosage: UNK
     Dates: start: 20120514, end: 20120515
  18. FUROSEMIDE [Concomitant]
     Dosage: UNK
     Dates: start: 20120514, end: 20120611
  19. SYMBICORT [Concomitant]
     Dosage: UNK
     Dates: start: 20120514, end: 20120515
  20. BECLOMETHASONE DIPROPIONATE [Concomitant]
     Indication: PRODUCT USED FOR UNKNOWN INDICATION
     Dosage: UNK
     Dates: start: 20120326

REACTIONS (3)
  - RASH MACULAR [None]
  - EYE SWELLING [None]
  - OEDEMA MOUTH [None]
